FAERS Safety Report 22307495 (Version 1)
Quarter: 2023Q2

REPORT INFORMATION
  Report Type: Spontaneous
  Country: SA (occurrence: SA)
  Receive Date: 20230511
  Receipt Date: 20230511
  Transmission Date: 20230721
  Serious: Yes (Other)
  Sender: FDA-Public Use
  Company Number: SA-SUN PHARMACEUTICAL INDUSTRIES LTD-2023R1-387893

PATIENT
  Age: 30 Year
  Sex: Male

DRUGS (1)
  1. PREDNISONE [Suspect]
     Active Substance: PREDNISONE
     Indication: Systemic lupus erythematosus
     Dosage: 1 MILLIGRAM/KILOGRAM
     Route: 048

REACTIONS (4)
  - Herpes virus infection [Recovered/Resolved]
  - Lupus nephritis [Recovered/Resolved]
  - Renal impairment [Unknown]
  - Dermatitis bullous [Recovered/Resolved]
